FAERS Safety Report 16372751 (Version 2)
Quarter: 2019Q3

REPORT INFORMATION
  Report Type: Spontaneous
  Country: US (occurrence: US)
  Receive Date: 20190530
  Receipt Date: 20190730
  Transmission Date: 20191004
  Serious: Yes (Other)
  Sender: FDA-Public Use
  Company Number: US-BRISTOL-MYERS SQUIBB COMPANY-BMS-2019-050745

PATIENT
  Age: 76 Year
  Sex: Male
  Weight: 93.89 kg

DRUGS (1)
  1. ELIQUIS [Suspect]
     Active Substance: APIXABAN
     Indication: CEREBROVASCULAR ACCIDENT PROPHYLAXIS
     Dosage: 5 MILLIGRAM, BID
     Route: 065
     Dates: start: 201605

REACTIONS (3)
  - Pneumonia [Unknown]
  - Pneumonia aspiration [Unknown]
  - Product physical issue [Unknown]

NARRATIVE: CASE EVENT DATE: 201905
